FAERS Safety Report 4754793-4 (Version None)
Quarter: 2005Q3

REPORT INFORMATION
  Report Type: 
  Country: None (occurrence: None)
  Receive Date: 20050829
  Receipt Date: 20050818
  Transmission Date: 20060218
  Serious: Yes (Other)
  Sender: FDA-Public Use
  Company Number: 2005UW12315

PATIENT
  Age: 86 Year
  Sex: Male
  Weight: 93 kg

DRUGS (7)
  1. SEROQUEL [Suspect]
     Indication: HALLUCINATION
     Route: 048
     Dates: start: 20000401
  2. NAMENDA [Suspect]
     Dates: end: 20050801
  3. CARBIDOPA W/LEVODOPA [Concomitant]
  4. EXELON [Concomitant]
  5. LEVOTHYROXINE [Concomitant]
  6. VITAMIN E [Concomitant]
  7. REMERON [Concomitant]
     Dosage: 30 MG 1/2 TABLET EVERY OTHER NIGHT

REACTIONS (6)
  - AGGRESSION [None]
  - AGITATION [None]
  - AKINESIA [None]
  - DRUG INTERACTION [None]
  - INSOMNIA [None]
  - SPEECH DISORDER [None]
